FAERS Safety Report 9825054 (Version 1)
Quarter: 2013Q4

REPORT INFORMATION
  Report Type: Spontaneous
  Country: US (occurrence: None)
  Receive Date: 20131028
  Receipt Date: 20131028
  Transmission Date: 20140711
  Serious: Yes (Other)
  Sender: FDA-Public Use
  Company Number: 2013US002233

PATIENT
  Age: 58 Year
  Sex: Female
  Weight: 43 kg

DRUGS (10)
  1. ICLUSIG [Suspect]
     Indication: CHRONIC MYELOID LEUKAEMIA
     Dosage: 45 MG, QD, ORAL
     Route: 048
     Dates: start: 20130726, end: 20130801
  2. LEVOTHYROXINE (LEVOTHYROXINE) [Concomitant]
  3. KLONOPIN (CLONAZEPAM) (TABLETS) [Concomitant]
  4. LASIX (FUROSEMIDE SODIUM) [Concomitant]
  5. MOBIC (MELOXICAM) [Concomitant]
  6. SPIRONOLACTONE (SPIRONOLACTONE) [Concomitant]
  7. VITAMIN C (ASCORBIC ACID) [Concomitant]
  8. CALCIUM WITH VITAMIN D (CALCIUM CARBONATE, COLECALCIFEROL) [Concomitant]
  9. MULTIVITAMIN (VITAMINS NOS) [Concomitant]
  10. PRILOSEC (OMEPRAZOLE) [Concomitant]

REACTIONS (5)
  - Pain in extremity [None]
  - Rash erythematous [None]
  - Constipation [None]
  - Decreased appetite [None]
  - Myalgia [None]
